FAERS Safety Report 22523493 (Version 1)
Quarter: 2023Q2

REPORT INFORMATION
  Report Type: Spontaneous
  Country: NO (occurrence: NO)
  Receive Date: 20230606
  Receipt Date: 20230606
  Transmission Date: 20230721
  Serious: Yes (Hospitalization)
  Sender: FDA-Public Use
  Company Number: None

PATIENT
  Age: 33 Year
  Sex: Male
  Weight: 107 kg

DRUGS (2)
  1. OZEMPIC [Suspect]
     Active Substance: SEMAGLUTIDE
     Indication: Overweight
  2. OZEMPIC [Suspect]
     Active Substance: SEMAGLUTIDE
     Indication: Diabetes mellitus
     Dosage: 1 MG, QW
     Route: 058
     Dates: start: 20221116, end: 20230330

REACTIONS (9)
  - Facial pain [Recovering/Resolving]
  - Pain [Recovering/Resolving]
  - Pain in jaw [Recovering/Resolving]
  - Toothache [Recovering/Resolving]
  - Cholelithiasis [Recovered/Resolved]
  - Gastrooesophageal reflux disease [Recovering/Resolving]
  - Noninfective gingivitis [Unknown]
  - Dental caries [Unknown]
  - Biliary colic [Recovered/Resolved]

NARRATIVE: CASE EVENT DATE: 20230329
